FAERS Safety Report 7372541-9 (Version None)
Quarter: 2011Q1

REPORT INFORMATION
  Report Type: 
  Country: None (occurrence: None)
  Receive Date: 20110324
  Receipt Date: 20110316
  Transmission Date: 20110831
  Serious: Yes (Hospitalization)
  Sender: FDA-Public Use
  Company Number: US-ALEXION-A201001414

PATIENT
  Sex: Female
  Weight: 69.8 kg

DRUGS (6)
  1. MAGNESIUM [Concomitant]
     Dosage: 400 MG, QD
     Route: 048
  2. SOLIRIS [Suspect]
     Dosage: 900 MG, Q2W
     Route: 042
     Dates: start: 20101028
  3. CYCLOSPORINE [Concomitant]
     Dosage: 200 MG, QD
     Route: 048
  4. SOLIRIS [Suspect]
     Indication: PAROXYSMAL NOCTURNAL HAEMOGLOBINURIA
     Dosage: 600 MG, QW
     Route: 042
     Dates: start: 20101014, end: 20101021
  5. FOLIC ACID [Concomitant]
     Dosage: 1 MG, QD
     Route: 048
  6. FAMVIR                             /01226201/ [Concomitant]
     Dosage: 250 MG, QD
     Route: 048

REACTIONS (3)
  - NON-CARDIOGENIC PULMONARY OEDEMA [None]
  - PLATELET COUNT DECREASED [None]
  - TRANSFUSION-RELATED ACUTE LUNG INJURY [None]
